FAERS Safety Report 23845390 (Version 2)
Quarter: 2024Q4

REPORT INFORMATION
  Report Type: Spontaneous
  Country: US (occurrence: US)
  Receive Date: 20240511
  Receipt Date: 20241122
  Transmission Date: 20250115
  Serious: No
  Sender: TRAVERE THERAPEUTICS
  Company Number: US-TRAVERE-2024TVT00361

PATIENT
  Sex: Female

DRUGS (4)
  1. FILSPARI [Suspect]
     Active Substance: SPARSENTAN
     Indication: Product use in unapproved indication
     Dosage: 200MG DAILY X 2 WEEKS, THEN 400MG DAILY
     Route: 048
  2. FILSPARI [Suspect]
     Active Substance: SPARSENTAN
     Indication: Focal segmental glomerulosclerosis
     Route: 048
     Dates: end: 202408
  3. FILSPARI [Suspect]
     Active Substance: SPARSENTAN
     Indication: Nephropathy
  4. FILSPARI [Suspect]
     Active Substance: SPARSENTAN
     Indication: Nephrotic syndrome

REACTIONS (3)
  - Product use in unapproved indication [Unknown]
  - Myalgia [Recovered/Resolved]
  - Muscle spasms [Recovered/Resolved]
